FAERS Safety Report 8295390-6 (Version None)
Quarter: 2012Q2

REPORT INFORMATION
  Report Type: 
  Country: None (occurrence: None)
  Receive Date: 20120416
  Receipt Date: 20120412
  Transmission Date: 20120825
  Serious: Yes (Life-Threatening, Hospitalization, Disabling, Other)
  Sender: FDA-Public Use
  Company Number: ZYD-12-AE-083

PATIENT
  Sex: Female

DRUGS (3)
  1. LAMOTRIGINE [Suspect]
     Indication: EPILEPSY
     Dosage: 700 MG - DAILY - ORAL
     Route: 048
     Dates: start: 20110901
  2. NEXIUM [Concomitant]
  3. TOPROL XL 25 MG DAILY [Concomitant]

REACTIONS (5)
  - GRAND MAL CONVULSION [None]
  - PRODUCT QUALITY ISSUE [None]
  - IMPAIRED DRIVING ABILITY [None]
  - PRODUCT SUBSTITUTION ISSUE [None]
  - ANTICONVULSANT DRUG LEVEL ABNORMAL [None]
